FAERS Safety Report 5046721-1 (Version None)
Quarter: 2006Q2

REPORT INFORMATION
  Report Type: 
  Country: None (occurrence: None)
  Receive Date: 20060601
  Receipt Date: 20060321
  Transmission Date: 20061013
  Serious: No
  Sender: FDA-Public Use
  Company Number: 2006PV010683

PATIENT
  Age: 61 Year
  Sex: Female

DRUGS (16)
  1. BYETTA [Suspect]
     Indication: DIABETES MELLITUS NON-INSULIN-DEPENDENT
     Dosage: 5 MCG;BID;SC
     Route: 058
     Dates: start: 20060314, end: 20060301
  2. SYNTHROID [Concomitant]
  3. LORATADINE [Concomitant]
  4. OSCAL D [Concomitant]
  5. KLOR-CON [Concomitant]
  6. ISOSORBIDE DINITRATE [Concomitant]
  7. HYDROCHLOROTHIAZIDE [Concomitant]
  8. NAPROXEN [Concomitant]
  9. PRAVACHOL [Concomitant]
  10. COMBIVENT [Concomitant]
  11. ALLEGRA [Concomitant]
  12. GLIPIZIDE [Concomitant]
  13. PRILOSEC [Concomitant]
  14. IMDUR [Concomitant]
  15. SULAR [Concomitant]
  16. BENADEX [Concomitant]

REACTIONS (4)
  - ANGIONEUROTIC OEDEMA [None]
  - DIZZINESS [None]
  - FALL [None]
  - GASTROOESOPHAGEAL REFLUX DISEASE [None]
